FAERS Safety Report 8034007-2 (Version None)
Quarter: 2011Q4

REPORT INFORMATION
  Report Type: 
  Country: None (occurrence: None)
  Receive Date: 20111222
  Receipt Date: 20111216
  Transmission Date: 20120403
  Serious: Yes (Other)
  Sender: FDA-Public Use
  Company Number: DSA_48561_2011

PATIENT
  Age: 32 Year
  Sex: Female
  Weight: 48.9885 kg

DRUGS (3)
  1. WELLBUTRIN [Suspect]
     Indication: FATIGUE
     Dosage: 300 MG, EVERY EVENING ORAL, 300 MG, EVERY EVENING ORAL
     Route: 048
     Dates: start: 20040101, end: 20090101
  2. TOPAMAX [Concomitant]
  3. HYDROCHLOROQUINE [Concomitant]

REACTIONS (5)
  - APHASIA [None]
  - SYSTEMIC LUPUS ERYTHEMATOSUS [None]
  - PREGNANCY [None]
  - MATERNAL EXPOSURE DURING PREGNANCY [None]
  - AMNESIA [None]
